FAERS Safety Report 23163193 (Version 3)
Quarter: 2024Q1

REPORT INFORMATION
  Report Type: Spontaneous
  Country: AR (occurrence: AR)
  Receive Date: 20231109
  Receipt Date: 20240103
  Transmission Date: 20240410
  Serious: No
  Sender: FDA-Public Use
  Company Number: AR-PFIZER INC-PV202300178755

PATIENT
  Age: 13 Year
  Sex: Male

DRUGS (1)
  1. GENOTROPIN [Suspect]
     Active Substance: SOMATROPIN
     Indication: Short stature
     Dosage: 1.5 TO 2MG 7 TIMES PER WEEK
     Dates: start: 20220825

REACTIONS (6)
  - Drug dose omission by device [Unknown]
  - Incorrect dose administered by device [Not Recovered/Not Resolved]
  - Device breakage [Unknown]
  - Device mechanical issue [Unknown]
  - Device malfunction [Unknown]
  - Product prescribing error [Unknown]

NARRATIVE: CASE EVENT DATE: 20220825
